FAERS Safety Report 5399786-1 (Version None)
Quarter: 2007Q3

REPORT INFORMATION
  Report Type: 
  Country: None (occurrence: None)
  Receive Date: 20070730
  Receipt Date: 20070717
  Transmission Date: 20080115
  Serious: Yes (Hospitalization)
  Sender: FDA-Public Use
  Company Number: DE-JNJFOC-20070500864

PATIENT
  Age: 6 Decade
  Sex: Female

DRUGS (6)
  1. REMICADE [Suspect]
     Indication: RHEUMATOID ARTHRITIS
     Route: 042
  2. METHOTREXATE [Concomitant]
  3. METHOTREXATE [Concomitant]
  4. PREDNISOLONE [Concomitant]
     Route: 048
  5. DICLOFENAC SODIUM [Concomitant]
     Dosage: UP TO 150 MG ONCE DAILY INTERMITTENTLY SINCE AUGUST 2000.
     Route: 048
  6. ESOMEPRAZOLE MAGNESIUM [Concomitant]
     Dosage: 20 MG ONCE DAILY INTERMITTENTLY SINCE APRIL 2006
     Route: 048

REACTIONS (1)
  - ENTEROCOLITIS [None]
